FAERS Safety Report 9642910 (Version 1)
Quarter: 2013Q4

REPORT INFORMATION
  Report Type: Spontaneous
  Country: JP (occurrence: JP)
  Receive Date: 20131024
  Receipt Date: 20131024
  Transmission Date: 20140711
  Serious: Yes (Other)
  Sender: FDA-Public Use
  Company Number: PHHY2013JP119467

PATIENT
  Age: 68 Year
  Sex: Female

DRUGS (1)
  1. LOCHOL [Suspect]
     Dosage: 20 MG, DAILY
     Route: 048

REACTIONS (2)
  - Gastrooesophageal reflux disease [Unknown]
  - Altered state of consciousness [Unknown]
